FAERS Safety Report 8308563-0 (Version None)
Quarter: 2012Q2

REPORT INFORMATION
  Report Type: 
  Country: None (occurrence: None)
  Receive Date: 20120424
  Receipt Date: 20120411
  Transmission Date: 20120825
  Serious: Yes (Death)
  Sender: FDA-Public Use
  Company Number: CA-ELI_LILLY_AND_COMPANY-CA201204003556

PATIENT
  Age: 48 Year
  Sex: Male

DRUGS (5)
  1. INDERAL LA [Concomitant]
     Dosage: 40 MG, TID
  2. CLOZARIL [Concomitant]
     Dosage: 700 MG, QD
     Route: 048
  3. PHENERGAN HCL [Concomitant]
     Dosage: 100 MG, QD
  4. ZYPREXA [Suspect]
     Dosage: 20 MG, QD
  5. LIPITOR [Concomitant]

REACTIONS (1)
  - DEATH [None]
